FAERS Safety Report 4855740-7 (Version None)
Quarter: 2005Q4

REPORT INFORMATION
  Report Type: 
  Country: None (occurrence: None)
  Receive Date: 20051216
  Receipt Date: 20051207
  Transmission Date: 20060501
  Serious: Yes (Hospitalization)
  Sender: FDA-Public Use
  Company Number: FR-JNJFOC-20051202016

PATIENT
  Age: 33 Year
  Sex: Female

DRUGS (5)
  1. LEUSTATINE [Suspect]
     Route: 042
     Dates: start: 20050830, end: 20050905
  2. LEUSTATINE [Suspect]
     Dosage: 3 CYCLES, DOSE UNKNOWN
     Route: 042
     Dates: start: 20050830, end: 20050905
  3. LIPANTHYL [Suspect]
     Indication: DRUG USE FOR UNKNOWN INDICATION
     Route: 048
  4. OROKEN [Suspect]
     Indication: DRUG USE FOR UNKNOWN INDICATION
     Route: 048
     Dates: start: 20050905, end: 20050920
  5. TAVANIC [Suspect]
     Indication: DRUG USE FOR UNKNOWN INDICATION
     Route: 048
     Dates: start: 20050905, end: 20050920

REACTIONS (2)
  - ANTEROGRADE AMNESIA [None]
  - MYASTHENIC SYNDROME [None]
